FAERS Safety Report 10025806 (Version 1)
Quarter: 2014Q1

REPORT INFORMATION
  Report Type: Spontaneous
  Country: NO (occurrence: None)
  Receive Date: 20140314
  Receipt Date: 20140314
  Transmission Date: 20141002
  Serious: Yes (Other)
  Sender: FDA-Public Use
  Company Number: 2014P1002045

PATIENT
  Sex: Female
  Weight: 4.7 kg

DRUGS (1)
  1. TOPIRAMATE [Suspect]
     Route: 064

REACTIONS (4)
  - Diarrhoea [None]
  - Exposure during breast feeding [None]
  - Poor weight gain neonatal [None]
  - Maternal drugs affecting foetus [None]
